FAERS Safety Report 6497948-3 (Version None)
Quarter: 2009Q4

REPORT INFORMATION
  Report Type: 
  Country: None (occurrence: None)
  Receive Date: 20091215
  Receipt Date: 20091203
  Transmission Date: 20100525
  Serious: Yes (Other)
  Sender: FDA-Public Use
  Company Number: MX-PFIZER INC-2009305800

PATIENT
  Age: 41 Year
  Sex: Female
  Weight: 50 kg

DRUGS (2)
  1. AROMASIN [Suspect]
     Indication: BREAST CANCER
     Dosage: 1 TABLET, 1X/DAY
     Dates: start: 20050501
  2. CALTRATE + D [Concomitant]
     Dosage: 1 TABLET, 1 DF, 1X/DAY
     Route: 048
     Dates: start: 20050501

REACTIONS (1)
  - VISUAL ACUITY REDUCED [None]
